FAERS Safety Report 19209778 (Version 4)
Quarter: 2021Q3

REPORT INFORMATION
  Report Type: Report from Study
  Country: US (occurrence: US)
  Receive Date: 20210504
  Receipt Date: 20210721
  Transmission Date: 20211014
  Serious: Yes (Hospitalization)
  Sender: FDA-Public Use
  Company Number: NVSC2021US090023

PATIENT
  Age: 57 Year
  Sex: Female

DRUGS (4)
  1. INSULIN [Concomitant]
     Active Substance: INSULIN NOS
     Indication: PRODUCT USED FOR UNKNOWN INDICATION
     Dosage: 35 UNITS TID
     Route: 065
  2. INSULIN [Concomitant]
     Active Substance: INSULIN NOS
     Dosage: UNK UNK, BID (65 UNITS IN THE AM AND 40 UNITS IN THE PM)
     Route: 065
  3. ENTRESTO [Suspect]
     Active Substance: SACUBITRIL\VALSARTAN
     Indication: CARDIAC FAILURE CHRONIC
     Dosage: 1 DF (24/26 MG)
     Route: 065
     Dates: start: 202009
  4. HUMIRA [Concomitant]
     Active Substance: ADALIMUMAB
     Indication: RHEUMATOID ARTHRITIS
     Dosage: UNK UNK, UNKNOWN
     Route: 065

REACTIONS (16)
  - Nephrolithiasis [Unknown]
  - Feeling abnormal [Unknown]
  - Urinary tract infection [Unknown]
  - Dyspnoea [Recovered/Resolved]
  - Blood pressure decreased [Recovering/Resolving]
  - Malaise [Unknown]
  - Diaphragmatic paralysis [Unknown]
  - Blood glucose increased [Recovering/Resolving]
  - Peripheral swelling [Recovered/Resolved]
  - Dehydration [Recovering/Resolving]
  - Arthralgia [Recovering/Resolving]
  - Fatigue [Recovering/Resolving]
  - Diarrhoea [Unknown]
  - Pyrexia [Recovered/Resolved]
  - Chills [Recovered/Resolved]
  - Nausea [Recovered/Resolved]

NARRATIVE: CASE EVENT DATE: 202101
